FAERS Safety Report 8067159-9 (Version None)
Quarter: 2012Q1

REPORT INFORMATION
  Report Type: 
  Country: None (occurrence: None)
  Receive Date: 20120124
  Receipt Date: 20120120
  Transmission Date: 20120608
  Serious: Yes (Hospitalization)
  Sender: FDA-Public Use
  Company Number: US-GLAXOSMITHKLINE-A0775471A

PATIENT
  Age: 54 Year
  Sex: Female
  Weight: 69.1 kg

DRUGS (6)
  1. AVANDIA [Suspect]
     Indication: DIABETES MELLITUS
     Dosage: 8MG PER DAY
     Route: 048
  2. TEGRETOL [Concomitant]
  3. ALTACE [Concomitant]
  4. INSULIN [Concomitant]
  5. NEURONTIN [Concomitant]
  6. LIPITOR [Concomitant]

REACTIONS (1)
  - THROMBOTIC STROKE [None]
